FAERS Safety Report 7465186-3 (Version None)
Quarter: 2011Q2

REPORT INFORMATION
  Report Type: 
  Country: None (occurrence: None)
  Receive Date: 20110509
  Receipt Date: 20110502
  Transmission Date: 20111010
  Serious: Yes (Hospitalization, Other)
  Sender: FDA-Public Use
  Company Number: FR-PFIZER INC-2011035208

PATIENT
  Age: 51 Year
  Sex: Male

DRUGS (7)
  1. LIPANTHYL [Concomitant]
     Indication: HYPERLIPIDAEMIA
     Dosage: UNK
     Dates: start: 20081021
  2. SIROLIMUS [Suspect]
     Indication: PROPHYLAXIS AGAINST TRANSPLANT REJECTION
     Dosage: 4 MG OR 3 MG DAILY
     Dates: start: 20080115
  3. METFORMIN [Concomitant]
     Indication: DIABETES MELLITUS
     Dosage: UNK
     Dates: start: 20080101
  4. AVLOCARDYL [Concomitant]
     Indication: HYPERTENSION
     Dosage: UNK
  5. INSULIN [Concomitant]
     Indication: DIABETES MELLITUS
     Dosage: UNK
     Dates: start: 20050101
  6. APROVEL [Concomitant]
     Indication: HYPERTENSION
     Dosage: UNK
     Dates: start: 20080715
  7. TAHOR [Concomitant]
     Indication: BLOOD CHOLESTEROL
     Dosage: UNK
     Dates: start: 20100601

REACTIONS (1)
  - PROSTATE CANCER [None]
